FAERS Safety Report 21163611 (Version 2)
Quarter: 2022Q3

REPORT INFORMATION
  Report Type: Spontaneous
  Country: None (occurrence: CN)
  Receive Date: 20220802
  Receipt Date: 20220812
  Transmission Date: 20221027
  Serious: Yes (Death)
  Sender: FDA-Public Use
  Company Number: CN-Shanghai Hengrui Pharmaceutical Co., Ltd.-2131470

PATIENT
  Age: 69 Year
  Sex: Male
  Weight: 69 kg

DRUGS (12)
  1. SEVOFLURANE [Suspect]
     Active Substance: SEVOFLURANE
     Indication: Induction of anaesthesia
     Route: 055
     Dates: start: 20220716, end: 20220716
  2. CEFTRIAXONE SODIUM [Suspect]
     Active Substance: CEFTRIAXONE SODIUM
     Route: 041
     Dates: start: 20220715, end: 20220715
  3. REMIFENTANIL HYDROCHLORIDE [Suspect]
     Active Substance: REMIFENTANIL HYDROCHLORIDE
     Dates: start: 20220716, end: 20220716
  4. ETOMIDATE [Suspect]
     Active Substance: ETOMIDATE
     Route: 017
     Dates: start: 20220716, end: 20220716
  5. DEXMEDETOMIDINE [Suspect]
     Active Substance: DEXMEDETOMIDINE
     Dates: start: 20220716
  6. SUFENTANIL CITRATE [Suspect]
     Active Substance: SUFENTANIL CITRATE
     Route: 017
     Dates: start: 20220716
  7. PROPOFOL [Suspect]
     Active Substance: PROPOFOL
     Dates: end: 20220716
  8. ROCURONIUM BROMIDE [Suspect]
     Active Substance: ROCURONIUM BROMIDE
     Route: 017
     Dates: start: 20220716, end: 20220716
  9. FLURBIPROFEN AXETIL [Suspect]
     Active Substance: FLURBIPROFEN AXETIL
     Route: 017
     Dates: start: 20220716, end: 20220716
  10. DEZOCINE [Suspect]
     Active Substance: DEZOCINE
     Route: 017
     Dates: start: 20220716, end: 20220716
  11. DEXAMETHASONE SODIUM PHOSPHATE [Suspect]
     Active Substance: DEXAMETHASONE SODIUM PHOSPHATE
     Route: 017
     Dates: start: 20220716, end: 20220716
  12. TROPISETRON HYDROCHLORIDE [Suspect]
     Active Substance: TROPISETRON HYDROCHLORIDE
     Route: 017
     Dates: start: 20220716, end: 20220716

REACTIONS (2)
  - Sudden cardiac death [Fatal]
  - Arrhythmia [Fatal]

NARRATIVE: CASE EVENT DATE: 20220716
